FAERS Safety Report 23875896 (Version 2)
Quarter: 2024Q3

REPORT INFORMATION
  Report Type: Spontaneous
  Country: US (occurrence: US)
  Receive Date: 20240520
  Receipt Date: 20240718
  Transmission Date: 20241017
  Serious: No
  Sender: SANOFI AVENTIS
  Company Number: US-SA-SAC20240515000373

PATIENT
  Age: 45 Year
  Sex: Male

DRUGS (1)
  1. FABRAZYME [Suspect]
     Active Substance: AGALSIDASE BETA
     Dosage: UNK
     Route: 065

REACTIONS (2)
  - Drug specific antibody present [Not Recovered/Not Resolved]
  - Neutralising antibodies positive [Not Recovered/Not Resolved]

NARRATIVE: CASE EVENT DATE: 20240425
